FAERS Safety Report 5696367-7 (Version None)
Quarter: 2008Q2

REPORT INFORMATION
  Report Type: 
  Country: None (occurrence: None)
  Receive Date: 20080408
  Receipt Date: 20080326
  Transmission Date: 20081010
  Serious: Yes (Other)
  Sender: FDA-Public Use
  Company Number: BR-PFIZER INC-2008027894

PATIENT
  Sex: Female
  Weight: 106 kg

DRUGS (4)
  1. CHAMPIX [Suspect]
     Indication: SMOKING CESSATION THERAPY
     Route: 048
  2. OMEPRAZOLE [Concomitant]
     Indication: OESOPHAGITIS
     Route: 065
  3. GLUCOVANCE [Concomitant]
     Indication: DIABETES MELLITUS
     Route: 065
  4. SERTRALINE [Concomitant]
     Route: 065

REACTIONS (5)
  - DYSPEPSIA [None]
  - HAEMATEMESIS [None]
  - MALAISE [None]
  - NAUSEA [None]
  - PHARYNGEAL DISORDER [None]
